FAERS Safety Report 8135501 (Version 2)
Quarter: 2012Q4

REPORT INFORMATION
  Report Type: 
  Country: US (occurrence: US)
  Receive Date: 20110914
  Receipt Date: 20120919
  Transmission Date: 20130627
  Serious: No
  Sender: FDA-Public Use
  Company Number: US-US-EMD SERONO, INC.-7082005

PATIENT
  Sex: Female

DRUGS (3)
  1. SAIZEN [(SOMATROPIN (RDNA ORIGIN) FOR INJECTION)] [Suspect]
     Indication: FIBROMYALGIA
     Dates: start: 201001, end: 201004
  2. SAIZEN [(SOMATROPIN (RDNA ORIGIN) FOR INJECTION)] [Suspect]
     Dates: start: 201107
  3. VITAMIN D [Concomitant]
     Indication: FIBROMYALGIA

REACTIONS (1)
  - Bronchitis [Recovered/Resolved]
